FAERS Safety Report 5304685-7 (Version None)
Quarter: 2007Q2

REPORT INFORMATION
  Report Type: 
  Country: None (occurrence: None)
  Receive Date: 20070423
  Receipt Date: 20070417
  Transmission Date: 20071010
  Serious: Yes (Disabling)
  Sender: FDA-Public Use
  Company Number: HQWYE504104APR07

PATIENT
  Sex: Male

DRUGS (3)
  1. EFFEXOR XR [Suspect]
     Dosage: UNKNOWN
     Dates: start: 20020101, end: 20040101
  2. EFFEXOR XR [Suspect]
     Dates: start: 20040101, end: 20050101
  3. EFFEXOR XR [Suspect]
     Dosage: ^USED 3 STARTER PACKS IN REVERSE OVER A PERIOD OF 1 1/2 MONTHS^
     Dates: start: 20050101, end: 20050101

REACTIONS (5)
  - BRAIN DAMAGE [None]
  - CONVULSION [None]
  - DEPRESSION [None]
  - DRUG WITHDRAWAL SYNDROME [None]
  - PARAESTHESIA [None]
